FAERS Safety Report 5129272-5 (Version None)
Quarter: 2006Q4

REPORT INFORMATION
  Report Type: 
  Country: None (occurrence: None)
  Receive Date: 20061011
  Receipt Date: 20060925
  Transmission Date: 20070319
  Serious: Yes (Hospitalization)
  Sender: FDA-Public Use
  Company Number: 6026016

PATIENT
  Age: 74 Year
  Sex: Female

DRUGS (5)
  1. LEVOTHYROX (TABLET) (LEVONTHYROXINE SODIUM) [Suspect]
     Indication: DRUG USE FOR UNKNOWN INDICATION
     Dosage: 75 MCG (75 MCG, 1 D) ORAL
     Route: 048
  2. LORAZEPAM [Suspect]
     Indication: DRUG USE FOR UNKNOWN INDICATION
     Dosage: 1 GM (1 GM, 1 D) ORAL
     Route: 048
     Dates: end: 20060629
  3. XELODA [Suspect]
     Indication: DRUG USE FOR UNKNOWN INDICATION
     Dosage: 3000, 0MG (1500 MG, 2 IN 1 D) ORAL
     Route: 048
     Dates: start: 20060615, end: 20060629
  4. AROMASINE (TABLET) (EXEMESTANE) [Suspect]
     Indication: DRUG USE FOR UNKNOWN INDICATION
     Dosage: 25 MG (25 MG, 1 D), ORAL
     Route: 048
     Dates: start: 20060515
  5. PLAVIX [Suspect]
     Indication: DRUG USE FOR UNKNOWN INDICATION
     Dosage: 75 MG (75 MG, 1 D), ORAL
     Route: 048
     Dates: end: 20060627

REACTIONS (17)
  - ABDOMINAL PAIN UPPER [None]
  - AGITATION [None]
  - CARDIOVASCULAR DISORDER [None]
  - CEREBRAL ISCHAEMIA [None]
  - CHOLESTASIS [None]
  - COUGH [None]
  - CYTOLYTIC HEPATITIS [None]
  - DEPRESSION [None]
  - DYSPNOEA [None]
  - FACIAL PALSY [None]
  - HEMIANOPIA [None]
  - INSOMNIA [None]
  - LEUKOENCEPHALOPATHY [None]
  - OEDEMA PERIPHERAL [None]
  - PITTING OEDEMA [None]
  - PLEURAL EFFUSION [None]
  - PSYCHOMOTOR HYPERACTIVITY [None]
